FAERS Safety Report 8998283 (Version 1)
Quarter: 2013Q1

REPORT INFORMATION
  Report Type: Spontaneous
  Country: BR (occurrence: BR)
  Receive Date: 20130104
  Receipt Date: 20130104
  Transmission Date: 20140127
  Serious: Yes (Other)
  Sender: FDA-Public Use
  Company Number: PHHY2012BR121381

PATIENT
  Sex: Male
  Weight: 50 kg

DRUGS (3)
  1. RITALINA [Suspect]
     Indication: PSYCHOMOTOR HYPERACTIVITY
     Dosage: 2 DF (MORNING AND AFTERNOON 1 CAPSULE AT NOON AND ANOTHER AT 03.00 PM) , DAILY
  2. RITALIN LA [Suspect]
     Indication: PSYCHOMOTOR HYPERACTIVITY
     Dosage: 1 DF (MORNING), UNK
  3. ZARGUS [Concomitant]

REACTIONS (4)
  - Gastritis [Unknown]
  - Agitation [Unknown]
  - Weight increased [Unknown]
  - Drug ineffective [Unknown]
